FAERS Safety Report 5197238-5 (Version None)
Quarter: 2007Q1

REPORT INFORMATION
  Report Type: 
  Country: None (occurrence: None)
  Receive Date: 20070103
  Receipt Date: 20061221
  Transmission Date: 20070707
  Serious: Yes (Other)
  Sender: FDA-Public Use
  Company Number: GB-ELI_LILLY_AND_COMPANY-GB200612002619

PATIENT
  Age: 38 Year
  Sex: Male
  Weight: 71 kg

DRUGS (10)
  1. ATOMOXETINE HYDROCHLORIDE [Suspect]
     Indication: ATTENTION DEFICIT/HYPERACTIVITY DISORDER
     Dosage: 40 MG, EACH MORNING
     Route: 048
     Dates: start: 20061204, end: 20061201
  2. CLOZAPINE [Concomitant]
     Indication: SCHIZOPHRENIA
     Dosage: 650 MG, UNKNOWN
     Route: 065
  3. CLOZAPINE [Concomitant]
     Dosage: 550 MG, EACH EVENING
     Route: 065
  4. AMISULPRIDE [Concomitant]
     Dosage: 100 MG, 2/D
     Route: 065
  5. LACTULOSE [Concomitant]
     Dosage: 30 ML, 2/D
     Route: 065
  6. DOMPERIDONE [Concomitant]
     Dosage: 10 MG, 3/D
     Route: 065
  7. LANSOPRAZOLE [Concomitant]
     Dosage: 20 MG, EACH EVENING
     Route: 065
  8. GAVISCON [Concomitant]
     Dosage: 5 ML, AS NEEDED
     Route: 065
  9. ACETAMINOPHEN [Concomitant]
     Dosage: 1 G, AS NEEDED
     Route: 065
  10. VENLAFAXINE HCL [Concomitant]
     Dosage: 75 MG, EACH MORNING
     Route: 065
     Dates: end: 20061203

REACTIONS (3)
  - FALL [None]
  - GRAND MAL CONVULSION [None]
  - HEAD INJURY [None]
